FAERS Safety Report 24553070 (Version 1)
Quarter: 2024Q4

REPORT INFORMATION
  Report Type: Report from Study
  Country: ES (occurrence: ES)
  Receive Date: 20241028
  Receipt Date: 20241028
  Transmission Date: 20250115
  Serious: Yes (Death, Other)
  Sender: ABBVIE
  Company Number: ES-JNJFOC-20241063120

PATIENT

DRUGS (1)
  1. IMBRUVICA [Suspect]
     Active Substance: IBRUTINIB
     Indication: Waldenstrom^s macroglobulinaemia
     Route: 048

REACTIONS (20)
  - Death [Fatal]
  - Cardiac disorder [Unknown]
  - Cardiac failure [Fatal]
  - Musculoskeletal pain [Unknown]
  - Infection [Unknown]
  - Blood disorder [Unknown]
  - Gastrointestinal toxicity [Unknown]
  - Colitis ischaemic [Fatal]
  - Thrombocytopenia [Fatal]
  - Atrial fibrillation [Fatal]
  - Asthenia [Unknown]
  - Arthropathy [Unknown]
  - Hypertension [Unknown]
  - Haemorrhage [Unknown]
  - Chronic lymphocytic leukaemia [Fatal]
  - Neuromyopathy [Fatal]
  - Toxicity to various agents [Unknown]
  - Muscle spasms [Unknown]
  - Cholestasis [Fatal]
  - Neoplasm [Unknown]
